FAERS Safety Report 5910029-X (Version None)
Quarter: 2008Q4

REPORT INFORMATION
  Report Type: 
  Country: None (occurrence: None)
  Receive Date: 20081007
  Receipt Date: 20080709
  Transmission Date: 20090506
  Serious: Yes (Other)
  Sender: FDA-Public Use
  Company Number: US-ASTRAZENECA-2007UW03203

PATIENT
  Age: 51 Year
  Sex: Female
  Weight: 69.4 kg

DRUGS (2)
  1. ARIMIDEX [Suspect]
     Indication: BREAST CANCER
     Route: 048
     Dates: start: 20040901, end: 20080101
  2. NOLVADEX [Concomitant]

REACTIONS (4)
  - BLOOD CHOLESTEROL INCREASED [None]
  - HOT FLUSH [None]
  - VULVOVAGINAL DRYNESS [None]
  - WEIGHT DECREASED [None]
